FAERS Safety Report 5168095-8 (Version None)
Quarter: 2006Q4

REPORT INFORMATION
  Report Type: 
  Country: None (occurrence: None)
  Receive Date: 20061208
  Receipt Date: 20060628
  Transmission Date: 20070319
  Serious: Yes (Other)
  Sender: FDA-Public Use
  Company Number: US-AMGEN-KDL184785

PATIENT
  Sex: Male

DRUGS (2)
  1. ENBREL [Suspect]
     Indication: ANKYLOSING SPONDYLITIS
     Route: 058
     Dates: start: 20030901
  2. METHOTREXATE [Concomitant]
     Dates: start: 19870101

REACTIONS (7)
  - AXILLARY PAIN [None]
  - BREAST MASS [None]
  - BURNING SENSATION [None]
  - GAIT DISTURBANCE [None]
  - NODULE [None]
  - SENSORY DISTURBANCE [None]
  - VISUAL DISTURBANCE [None]
